FAERS Safety Report 13913112 (Version 1)
Quarter: 2017Q3

REPORT INFORMATION
  Report Type: Spontaneous
  Country: US (occurrence: US)
  Receive Date: 20170828
  Receipt Date: 20170828
  Transmission Date: 20171127
  Serious: No
  Sender: FDA-Public Use
  Company Number: US-ROCHE-1122470

PATIENT
  Sex: Male
  Weight: 33.6 kg

DRUGS (1)
  1. NUTROPIN [Suspect]
     Active Substance: SOMATROPIN
     Indication: GROWTH HORMONE DEFICIENCY
     Dosage: DILUTED WITH 2 ML DOSE GIVEN 0.27CC
     Route: 058
     Dates: start: 199905

REACTIONS (1)
  - Goitre [Unknown]
